FAERS Safety Report 9378339 (Version 2)
Quarter: 2013Q3

REPORT INFORMATION
  Report Type: Report from Study
  Country: JP (occurrence: JP)
  Receive Date: 20130701
  Receipt Date: 20130816
  Transmission Date: 20140515
  Serious: Yes (Other)
  Sender: FDA-Public Use
  Company Number: JP-BAYER-2013-078838

PATIENT
  Age: 34 Year
  Sex: Female
  Weight: 46 kg

DRUGS (2)
  1. BAYASPIRIN [Suspect]
     Indication: NEOPLASM PROPHYLAXIS
     Dosage: DAILY DOSE 100 MG/DAY
     Route: 048
     Dates: start: 20071001, end: 20080702
  2. BIOLACTIS [Concomitant]
     Indication: INTESTINAL POLYP
     Dosage: DAILY DOSE 2 G
     Route: 048
     Dates: start: 20050803

REACTIONS (2)
  - Anaemia [Recovered/Resolved]
  - Off label use [None]
